FAERS Safety Report 6104622-1 (Version None)
Quarter: 2009Q1

REPORT INFORMATION
  Report Type: 
  Country: None (occurrence: None)
  Receive Date: 20090304
  Receipt Date: 20090224
  Transmission Date: 20090719
  Serious: Yes (Other)
  Sender: FDA-Public Use
  Company Number: APP200900098

PATIENT
  Age: 45 Year
  Sex: Male

DRUGS (3)
  1. HEPARIN SODIUM INJECTION [Suspect]
     Indication: STENT PLACEMENT
  2. PLAVIX [Suspect]
     Indication: STENT PLACEMENT
     Dosage: 75 MG, 2 IN 1 D, ORAL
     Route: 048
  3. ASPIRIN [Suspect]
     Indication: STENT PLACEMENT
     Dosage: 81 MG, 1 IN  1 D, ORAL,; 325 MG, 1 IN 1 D, ORAL
     Route: 048

REACTIONS (2)
  - CORONARY ARTERY OCCLUSION [None]
  - THROMBOSIS [None]
